FAERS Safety Report 15867216 (Version 2)
Quarter: 2019Q1

REPORT INFORMATION
  Report Type: Spontaneous
  Country: NZ (occurrence: NZ)
  Receive Date: 20190125
  Receipt Date: 20190205
  Transmission Date: 20190417
  Serious: Yes (Hospitalization, Other)
  Sender: FDA-Public Use
  Company Number: NZ-ELI_LILLY_AND_COMPANY-NZ201901006916

PATIENT
  Age: 57 Year
  Sex: Male

DRUGS (2)
  1. ZYPREXA [Suspect]
     Active Substance: OLANZAPINE
     Indication: PRODUCT USED FOR UNKNOWN INDICATION
     Dosage: 300 MG, 2/52
     Route: 030
     Dates: start: 20180612
  2. ZYPREXA [Suspect]
     Active Substance: OLANZAPINE
     Dosage: 210 MG, FORTNIGHTLY
     Dates: start: 20181114

REACTIONS (6)
  - Somnolence [Unknown]
  - Balance disorder [Unknown]
  - Daydreaming [Unknown]
  - Bradyphrenia [Not Recovered/Not Resolved]
  - Pallor [Unknown]
  - Urinary incontinence [Unknown]

NARRATIVE: CASE EVENT DATE: 20190109
